FAERS Safety Report 18753349 (Version 2)
Quarter: 2021Q1

REPORT INFORMATION
  Report Type: Spontaneous
  Country: US (occurrence: US)
  Receive Date: 20210118
  Receipt Date: 20210210
  Transmission Date: 20210419
  Serious: Yes (Death, Life-Threatening, Hospitalization, Disabling)
  Sender: FDA-Public Use
  Company Number: US-STASON PHARMACEUTICALS, INC.-2105483

PATIENT
  Age: 19 Year
  Sex: Male
  Weight: 103.8 kg

DRUGS (1)
  1. MERCAPTOPURINE. [Suspect]
     Active Substance: MERCAPTOPURINE

REACTIONS (6)
  - Abdominal pain [None]
  - Alanine aminotransferase increased [None]
  - International normalised ratio increased [None]
  - Blood alkaline phosphatase increased [None]
  - Activated partial thromboplastin time prolonged [None]
  - Blood bilirubin increased [None]
